FAERS Safety Report 10359843 (Version 3)
Quarter: 2014Q4

REPORT INFORMATION
  Report Type: Spontaneous
  Country: US (occurrence: US)
  Receive Date: 20140804
  Receipt Date: 20141119
  Transmission Date: 20150528
  Serious: Yes (Other)
  Sender: FDA-Public Use
  Company Number: US-JNJFOC-20140718868

PATIENT
  Age: 67 Year
  Sex: Male
  Weight: 114.31 kg

DRUGS (3)
  1. INVOKANA [Suspect]
     Active Substance: CANAGLIFLOZIN
     Indication: TYPE 2 DIABETES MELLITUS
     Route: 048
     Dates: start: 20140728
  2. INVOKANA [Suspect]
     Active Substance: CANAGLIFLOZIN
     Indication: TYPE 2 DIABETES MELLITUS
     Route: 048
     Dates: start: 20140723
  3. INSULIN [Concomitant]
     Active Substance: INSULIN NOS
     Dosage: 60 UNITS BASE??28 UNITS AFTERNOON

REACTIONS (3)
  - Genital infection fungal [Recovered/Resolved with Sequelae]
  - Pilonidal cyst [Recovered/Resolved]
  - Scrotal haematocoele [Recovering/Resolving]

NARRATIVE: CASE EVENT DATE: 20140726
